FAERS Safety Report 8391387-6 (Version None)
Quarter: 2012Q2

REPORT INFORMATION
  Report Type: 
  Country: None (occurrence: None)
  Receive Date: 20120529
  Receipt Date: 20120516
  Transmission Date: 20120825
  Serious: Yes (Other)
  Sender: FDA-Public Use
  Company Number: US-JNJFOC-20120515684

PATIENT
  Sex: Male
  Weight: 99.79 kg

DRUGS (2)
  1. DURAGESIC-100 [Suspect]
     Indication: BACK INJURY
     Dosage: 50 MCG/HR 2 IN 48 HOURS
     Route: 062
  2. DURAGESIC-100 [Suspect]
     Dosage: 25MCG/2 IN 48 HOURS
     Route: 062

REACTIONS (9)
  - BODY HEIGHT DECREASED [None]
  - ANXIETY [None]
  - HYPERHIDROSIS [None]
  - PRODUCT QUALITY ISSUE [None]
  - MUSCULOSKELETAL STIFFNESS [None]
  - HYPERTENSION [None]
  - HEART RATE INCREASED [None]
  - BREAKTHROUGH PAIN [None]
  - DRUG EFFECT DECREASED [None]
